FAERS Safety Report 5778425-1 (Version None)
Quarter: 2008Q2

REPORT INFORMATION
  Report Type: 
  Country: None (occurrence: None)
  Receive Date: 20080619
  Receipt Date: 20080403
  Transmission Date: 20081010
  Serious: No
  Sender: FDA-Public Use
  Company Number: A0719163A

PATIENT
  Age: 26 Year
  Sex: Female

DRUGS (3)
  1. ZYBAN [Suspect]
     Dosage: 150MG PER DAY
     Route: 048
     Dates: start: 20070304
  2. TYLENOL [Concomitant]
  3. AMOXICILLIN [Concomitant]

REACTIONS (4)
  - HYPERSENSITIVITY [None]
  - ODYNOPHAGIA [None]
  - PHARYNGOLARYNGEAL PAIN [None]
  - RASH PAPULAR [None]
